FAERS Safety Report 11704297 (Version 2)
Quarter: 2015Q4

REPORT INFORMATION
  Report Type: Spontaneous
  Country: ZA (occurrence: ZA)
  Receive Date: 20151106
  Receipt Date: 20151207
  Transmission Date: 20160304
  Serious: Yes (Death)
  Sender: FDA-Public Use
  Company Number: ZA-NOVOPROD-469252

PATIENT
  Age: 52 Year
  Sex: Male

DRUGS (3)
  1. NOVORAPID [Suspect]
     Active Substance: INSULIN ASPART
     Indication: TYPE 2 DIABETES MELLITUS
     Dosage: 24 IU, BID
     Route: 058
     Dates: end: 20151002
  2. NOVORAPID [Suspect]
     Active Substance: INSULIN ASPART
     Dosage: 24 IU, QD
     Route: 058
     Dates: start: 201508, end: 20151002
  3. LEVEMIR PENFILL [Suspect]
     Active Substance: INSULIN DETEMIR
     Indication: TYPE 2 DIABETES MELLITUS
     Dosage: 12 - 15 U AT NIGHT
     Route: 058
     Dates: end: 20151002

REACTIONS (1)
  - Pulmonary embolism [Fatal]

NARRATIVE: CASE EVENT DATE: 20151002
